FAERS Safety Report 6091413-3 (Version None)
Quarter: 2009Q1

REPORT INFORMATION
  Report Type: 
  Country: None (occurrence: None)
  Receive Date: 20090225
  Receipt Date: 20090123
  Transmission Date: 20090719
  Serious: No
  Sender: FDA-Public Use
  Company Number: A0764830A

PATIENT
  Sex: Male

DRUGS (4)
  1. VERAMYST [Suspect]
     Dosage: 1SPR TWICE PER DAY
     Route: 045
  2. FLONASE [Concomitant]
  3. ALLEGRA [Concomitant]
  4. PRILOSEC [Concomitant]

REACTIONS (2)
  - NASAL DISCOMFORT [None]
  - PRODUCT QUALITY ISSUE [None]
